FAERS Safety Report 5086586-5 (Version None)
Quarter: 2006Q3

REPORT INFORMATION
  Report Type: 
  Country: None (occurrence: None)
  Receive Date: 20060823
  Receipt Date: 20060815
  Transmission Date: 20061208
  Serious: Yes (Life-Threatening, Hospitalization, Disabling, Other)
  Sender: FDA-Public Use
  Company Number: GB-GLAXOSMITHKLINE-B0434717A

PATIENT
  Age: 72 Year
  Sex: Female

DRUGS (11)
  1. DIGOXIN [Suspect]
     Indication: DRUG USE FOR UNKNOWN INDICATION
     Route: 048
     Dates: start: 20060703, end: 20060710
  2. CLARITHROMYCIN [Suspect]
     Dosage: 500MG TWICE PER DAY
     Route: 048
     Dates: start: 20060706
  3. ALLOPURINOL [Concomitant]
     Dosage: 200MG PER DAY
     Route: 048
  4. AMOXICILLIN [Concomitant]
     Route: 048
     Dates: start: 20060619, end: 20060710
  5. ASPIRIN [Concomitant]
     Dosage: 75MG PER DAY
     Route: 048
     Dates: end: 20060710
  6. ATENOLOL [Concomitant]
     Dosage: 50MG PER DAY
     Route: 048
     Dates: end: 20060619
  7. FOSINOPRIL SODIUM [Concomitant]
     Dosage: 10MG PER DAY
     Route: 048
     Dates: end: 20060619
  8. GLICLAZIDE [Concomitant]
     Dosage: 160MG TWICE PER DAY
     Route: 048
     Dates: start: 20060705, end: 20060710
  9. OMEPRAZOLE [Concomitant]
     Dosage: 40MG PER DAY
     Route: 048
  10. RAMIPRIL [Concomitant]
     Dosage: 5MG PER DAY
     Route: 048
     Dates: start: 20060628, end: 20060710
  11. TOLBUTAMIDE [Concomitant]
     Dosage: 500MG TWICE PER DAY
     Route: 048
     Dates: end: 20060710

REACTIONS (6)
  - CARDIAC ARREST [None]
  - DRUG DEPENDENCE [None]
  - DRUG INTERACTION [None]
  - NODAL ARRHYTHMIA [None]
  - SUPRAVENTRICULAR TACHYCARDIA [None]
  - THERAPEUTIC AGENT TOXICITY [None]
